FAERS Safety Report 10923980 (Version 1)
Quarter: 2015Q1

REPORT INFORMATION
  Report Type: Spontaneous
  Country: US (occurrence: None)
  Receive Date: 20150316
  Receipt Date: 20150316
  Transmission Date: 20150721
  Serious: Yes (Death)
  Sender: FDA-Public Use
  Company Number: None

PATIENT
  Age: 68 Year
  Sex: Male
  Weight: 76.6 kg

DRUGS (1)
  1. VANCOMYCIN [Suspect]
     Active Substance: VANCOMYCIN
     Indication: CELLULITIS
     Route: 042
     Dates: start: 20150214, end: 20150214

REACTIONS (2)
  - Cardio-respiratory arrest [None]
  - Anaphylactic reaction [None]

NARRATIVE: CASE EVENT DATE: 20150214
